FAERS Safety Report 5617372-2 (Version None)
Quarter: 2008Q1

REPORT INFORMATION
  Report Type: 
  Country: None (occurrence: None)
  Receive Date: 20080207
  Receipt Date: 20070717
  Transmission Date: 20080703
  Serious: No
  Sender: FDA-Public Use
  Company Number: A0664587A

PATIENT
  Sex: Male

DRUGS (3)
  1. PAXIL [Suspect]
     Dosage: 10MG PER DAY
     Route: 048
  2. PAXIL [Suspect]
     Indication: ANXIETY DISORDER
     Dosage: 20MG PER DAY
     Route: 048
  3. NO CONCURRENT MEDICATION [Concomitant]

REACTIONS (3)
  - DRUG INEFFECTIVE [None]
  - ERECTILE DYSFUNCTION [None]
  - WEIGHT INCREASED [None]
